FAERS Safety Report 11115446 (Version 2)
Quarter: 2015Q2

REPORT INFORMATION
  Report Type: Spontaneous
  Country: JP (occurrence: JP)
  Receive Date: 20150515
  Receipt Date: 20150527
  Transmission Date: 20150821
  Serious: Yes (Death)
  Sender: FDA-Public Use
  Company Number: JP-PFIZER INC-2015166747

PATIENT
  Age: 73 Year
  Sex: Male

DRUGS (1)
  1. NOVASTAN [Suspect]
     Active Substance: ARGATROBAN
     Dosage: UNK
     Route: 051

REACTIONS (2)
  - Basal ganglia haemorrhage [Fatal]
  - Cerebral haematoma [Fatal]
